FAERS Safety Report 7128101-8 (Version None)
Quarter: 2010Q4

REPORT INFORMATION
  Report Type: 
  Country: None (occurrence: None)
  Receive Date: 20101130
  Receipt Date: 20101119
  Transmission Date: 20110411
  Serious: Yes (Hospitalization)
  Sender: FDA-Public Use
  Company Number: JP-BRISTOL-MYERS SQUIBB COMPANY-15236862

PATIENT
  Age: 59 Year
  Sex: Female
  Weight: 53 kg

DRUGS (2)
  1. ERBITUX [Suspect]
     Indication: RECTAL CANCER
     Dosage: 400MG/M2 12MAR-12MAR2010, 19MAR10-250 MG/M2, REC INF ON 26MAR10
     Route: 042
     Dates: start: 20100312
  2. IRINOTECAN HCL [Suspect]
     Indication: RECTAL CANCER
     Dosage: REC INF ON 26-MAR-2010.
     Route: 042
     Dates: start: 20100319

REACTIONS (4)
  - APHAGIA [None]
  - C-REACTIVE PROTEIN INCREASED [None]
  - DIARRHOEA [None]
  - NEUTROPHIL COUNT DECREASED [None]
